FAERS Safety Report 16045714 (Version 4)
Quarter: 2019Q2

REPORT INFORMATION
  Report Type: Spontaneous
  Country: AU (occurrence: AU)
  Receive Date: 20190307
  Receipt Date: 20190425
  Transmission Date: 20190711
  Serious: Yes (Hospitalization, Other)
  Sender: FDA-Public Use
  Company Number: AU-ACTELION-A-CH2019-186928

PATIENT
  Sex: Female

DRUGS (6)
  1. SOLIRIS [Concomitant]
     Active Substance: ECULIZUMAB
     Dosage: UNK
  2. WARFARIN [Concomitant]
     Active Substance: WARFARIN
  3. VENTAVIS [Concomitant]
     Active Substance: ILOPROST
     Route: 055
  4. VELETRI [Suspect]
     Active Substance: EPOPROSTENOL
     Indication: PULMONARY ARTERIAL HYPERTENSION
     Dosage: 1.5 MG, QD
     Route: 042
     Dates: start: 201712
  5. OPSUMIT [Suspect]
     Active Substance: MACITENTAN
     Indication: PULMONARY ARTERIAL HYPERTENSION
     Dosage: 10 MG, OD
     Route: 048
  6. SILDENAFIL. [Suspect]
     Active Substance: SILDENAFIL
     Indication: PULMONARY ARTERIAL HYPERTENSION
     Dosage: 25 MG, TID
     Route: 048

REACTIONS (6)
  - Haemorrhage [Unknown]
  - Device occlusion [Unknown]
  - Staphylococcal infection [Unknown]
  - Sepsis [Unknown]
  - Catheter site infection [Unknown]
  - Catheter management [Unknown]
